FAERS Safety Report 18151686 (Version 3)
Quarter: 2021Q1

REPORT INFORMATION
  Report Type: Spontaneous
  Country: US (occurrence: US)
  Receive Date: 20200814
  Receipt Date: 20210225
  Transmission Date: 20210419
  Serious: Yes (Other)
  Sender: FDA-Public Use
  Company Number: US-PFIZER INC-2020313450

PATIENT
  Age: 71 Year
  Sex: Female

DRUGS (1)
  1. IBRANCE [Suspect]
     Active Substance: PALBOCICLIB
     Indication: BREAST CANCER FEMALE
     Dosage: 125 MG, CYCLIC (ONCE A DAY X 21 DAYS EVERY 28 DAYS)
     Dates: start: 20190122

REACTIONS (5)
  - Abdominal discomfort [Unknown]
  - Abdominal pain [Unknown]
  - Diarrhoea [Unknown]
  - Fatigue [Not Recovered/Not Resolved]
  - Gastric ulcer [Unknown]
